FAERS Safety Report 8997129 (Version 1)
Quarter: 2013Q1

REPORT INFORMATION
  Report Type: Spontaneous
  Country: US (occurrence: None)
  Receive Date: 20130102
  Receipt Date: 20130102
  Transmission Date: 20140127
  Serious: No
  Sender: FDA-Public Use
  Company Number: None

PATIENT
  Sex: Male

DRUGS (1)
  1. STRIBILD [Suspect]
     Indication: HIV INFECTION
     Route: 048
     Dates: start: 201207

REACTIONS (2)
  - Palpitations [None]
  - Cardiac flutter [None]
